FAERS Safety Report 22693143 (Version 2)
Quarter: 2024Q3

REPORT INFORMATION
  Report Type: Spontaneous
  Country: US (occurrence: US)
  Receive Date: 20230711
  Receipt Date: 20240722
  Transmission Date: 20241017
  Serious: No
  Sender: ASTELLAS
  Company Number: US-ASTELLAS-2023US016849

PATIENT
  Age: 65 Year
  Sex: Female

DRUGS (1)
  1. MYRBETRIQ [Suspect]
     Active Substance: MIRABEGRON
     Indication: Product used for unknown indication
     Route: 065
     Dates: start: 202305, end: 20230529

REACTIONS (10)
  - Nasopharyngitis [Unknown]
  - Erythema [Unknown]
  - Blood pressure increased [Unknown]
  - Influenza [Unknown]
  - Back pain [Unknown]
  - Dizziness [Unknown]
  - Arthralgia [Unknown]
  - Headache [Unknown]
  - Sinus disorder [Unknown]
  - Rash [Unknown]

NARRATIVE: CASE EVENT DATE: 20230528
